FAERS Safety Report 21777797 (Version 2)
Quarter: 2023Q1

REPORT INFORMATION
  Report Type: Report from Study
  Country: MX (occurrence: MX)
  Receive Date: 20221226
  Receipt Date: 20230327
  Transmission Date: 20230418
  Serious: Yes (Other)
  Sender: FDA-Public Use
  Company Number: MX-002147023-NVSC2022MX275575

PATIENT
  Sex: Female
  Weight: 47 kg

DRUGS (4)
  1. KISQALI [Suspect]
     Active Substance: RIBOCICLIB
     Indication: Breast cancer
     Dosage: UNK (STOPPED ITS CONSUMPTION FOR 7 DAYS)
     Route: 048
  2. KISQALI [Suspect]
     Active Substance: RIBOCICLIB
     Dosage: UNK (STOPPED ITS CONSUMPTION FOR 10 DAYS)
     Route: 048
  3. KISQALI [Suspect]
     Active Substance: RIBOCICLIB
     Dosage: UNK
     Route: 048
     Dates: start: 202205
  4. KISQALI [Suspect]
     Active Substance: RIBOCICLIB
     Dosage: UNK (FOR 21 DAYS AND THEN SHE RESTS 10 DAYS)
     Route: 048
     Dates: start: 20220701

REACTIONS (15)
  - Hepatic lesion [Recovering/Resolving]
  - Tumour inflammation [Recovering/Resolving]
  - Metastases to spine [Unknown]
  - Muscle atrophy [Recovering/Resolving]
  - Mobility decreased [Unknown]
  - Somnolence [Unknown]
  - Decreased immune responsiveness [Recovered/Resolved]
  - Weight decreased [Unknown]
  - Blood uric acid increased [Recovered/Resolved]
  - Malaise [Unknown]
  - Skin discolouration [Unknown]
  - Constipation [Unknown]
  - Fatigue [Unknown]
  - Bone disorder [Recovering/Resolving]
  - Back disorder [Recovering/Resolving]

NARRATIVE: CASE EVENT DATE: 20220101
